FAERS Safety Report 14840589 (Version 2)
Quarter: 2018Q2

REPORT INFORMATION
  Report Type: Spontaneous
  Country: US (occurrence: US)
  Receive Date: 20180503
  Receipt Date: 20180509
  Transmission Date: 20180711
  Serious: Yes (Other)
  Sender: FDA-Public Use
  Company Number: US-SHIRE-US201816018

PATIENT
  Sex: Male

DRUGS (1)
  1. VYVANSE [Suspect]
     Active Substance: LISDEXAMFETAMINE DIMESYLATE
     Indication: ATTENTION DEFICIT/HYPERACTIVITY DISORDER
     Dosage: UNK, 1X/DAY:QD IN MORNING
     Route: 065

REACTIONS (7)
  - Head injury [Unknown]
  - Retrograde amnesia [Unknown]
  - Product lot number issue [Unknown]
  - Hyperhidrosis [Unknown]
  - Postictal state [Unknown]
  - Loss of consciousness [Unknown]
  - Seizure [Recovered/Resolved]
